FAERS Safety Report 9719444 (Version 4)
Quarter: 2014Q1

REPORT INFORMATION
  Report Type: Report from Study
  Country: CA (occurrence: CA)
  Receive Date: 20131128
  Receipt Date: 20140210
  Transmission Date: 20141002
  Serious: Yes (Hospitalization, Other)
  Sender: FDA-Public Use
  Company Number: CA-ROCHE-1309696

PATIENT
  Age: 81 Year
  Sex: Female
  Weight: 52.2 kg

DRUGS (10)
  1. RANIBIZUMAB [Suspect]
     Indication: AGE-RELATED MACULAR DEGENERATION
     Route: 050
     Dates: start: 20080314
  2. RANIBIZUMAB [Suspect]
     Dosage: LAST DOSE PRIOR TO SAE: 27/FEB/2013
     Route: 050
     Dates: start: 20130227
  3. RANIBIZUMAB [Suspect]
     Route: 050
     Dates: start: 20130302
  4. RANIBIZUMAB [Suspect]
     Route: 050
     Dates: start: 20130527
  5. SYNTHROID [Concomitant]
  6. BETAHISTINE [Concomitant]
  7. SIMVASTATIN [Concomitant]
  8. CLOPIDOGREL [Concomitant]
  9. RISEDRONATE [Concomitant]
  10. ENALAPRIL [Concomitant]

REACTIONS (6)
  - Multiple fractures [Recovered/Resolved]
  - Multiple injuries [Recovered/Resolved]
  - Road traffic accident [Unknown]
  - Epilepsy [Recovered/Resolved]
  - Subdural hygroma [Unknown]
  - Clostridium difficile infection [Recovered/Resolved]
